FAERS Safety Report 23840679 (Version 1)
Quarter: 2024Q2

REPORT INFORMATION
  Report Type: Spontaneous
  Country: US (occurrence: US)
  Receive Date: 20240510
  Receipt Date: 20240510
  Transmission Date: 20240716
  Serious: Yes (Other)
  Sender: FDA-Public Use
  Company Number: US-SUN PHARMACEUTICAL INDUSTRIES LTD-2024R1-445574

PATIENT
  Age: 68 Year
  Sex: Female

DRUGS (2)
  1. PREDNISONE [Suspect]
     Active Substance: PREDNISONE
     Indication: Pachymeningitis
     Dosage: 60 MILLIGRAM, DAILY
     Route: 048
  2. METHOTREXATE [Suspect]
     Active Substance: METHOTREXATE
     Indication: Pachymeningitis
     Dosage: 15 MILLIGRAM WEEKLY
     Route: 065

REACTIONS (3)
  - Condition aggravated [Unknown]
  - Pachymeningitis [Unknown]
  - Optic neuropathy [Unknown]
